FAERS Safety Report 5268913-9 (Version None)
Quarter: 2007Q1

REPORT INFORMATION
  Report Type: 
  Country: None (occurrence: None)
  Receive Date: 20061213
  Receipt Date: 20030717
  Transmission Date: 20070707
  Serious: Yes (Other)
  Sender: FDA-Public Use
  Company Number: 2003UW09129

PATIENT
  Age: 70 Year
  Sex: Female
  Weight: 79.3795 kg

DRUGS (3)
  1. IRESSA [Suspect]
     Indication: NON-SMALL CELL LUNG CANCER
     Dates: start: 20020901
  2. BABY ACETYLSALICYLIC ACID ACID [Suspect]
  3. LAMISIL [Suspect]

REACTIONS (5)
  - ACNE [None]
  - DRUG INTERACTION POTENTIATION [None]
  - DRY SKIN [None]
  - ONYCHOMYCOSIS [None]
  - PARONYCHIA [None]
